FAERS Safety Report 16099171 (Version 1)
Quarter: 2019Q1

REPORT INFORMATION
  Report Type: Spontaneous
  Country: US (occurrence: US)
  Receive Date: 20190321
  Receipt Date: 20190321
  Transmission Date: 20190418
  Serious: No
  Sender: FDA-Public Use
  Company Number: US-TEVA-2019-US-1017738

PATIENT
  Sex: Male

DRUGS (4)
  1. CLONAZEPAM  TABLETS ACTAVIS [Suspect]
     Active Substance: CLONAZEPAM
     Indication: RESTLESS LEGS SYNDROME
  2. CLONAZEPAM  TABLETS ACTAVIS [Suspect]
     Active Substance: CLONAZEPAM
     Indication: ANXIETY
     Route: 065
  3. CLONAZEPAM  TABLETS ACTAVIS [Suspect]
     Active Substance: CLONAZEPAM
     Indication: NEURALGIA
  4. CLONAZEPAM  TABLETS ACTAVIS [Suspect]
     Active Substance: CLONAZEPAM
     Indication: SLEEP DISORDER

REACTIONS (3)
  - Drug effect decreased [Unknown]
  - Product use in unapproved indication [Unknown]
  - Product substitution issue [Unknown]
